FAERS Safety Report 9375329 (Version 2)
Quarter: 2013Q2

REPORT INFORMATION
  Report Type: Report from Study
  Country: HU (occurrence: HU)
  Receive Date: 20130628
  Receipt Date: 20130628
  Transmission Date: 20140414
  Serious: Yes (Other)
  Sender: FDA-Public Use
  Company Number: HU-BRISTOL-MYERS SQUIBB COMPANY-15119027

PATIENT
  Age: 28 Year
  Sex: Male

DRUGS (3)
  1. ARIPIPRAZOLE IM DEPOT [Suspect]
     Indication: SCHIZOPHRENIA
     Route: 030
     Dates: start: 20091130, end: 20100412
  2. PLACEBO [Suspect]
     Indication: SCHIZOPHRENIA
  3. CLONAZEPAM [Concomitant]
     Dates: start: 20091118

REACTIONS (1)
  - Schizophrenia [Recovered/Resolved]
